FAERS Safety Report 21147157 (Version 1)
Quarter: 2022Q3

REPORT INFORMATION
  Report Type: Spontaneous
  Country: US (occurrence: US)
  Receive Date: 20220729
  Receipt Date: 20220729
  Transmission Date: 20221026
  Serious: Yes (Life-Threatening, Hospitalization, Other)
  Sender: FDA-Public Use
  Company Number: US-LUPIN PHARMACEUTICALS INC.-2022-09856

PATIENT
  Age: 51 Year
  Sex: Female

DRUGS (2)
  1. SULFAMETHOXAZOLE AND TRIMETHOPRIM [Suspect]
     Active Substance: SULFAMETHOXAZOLE\TRIMETHOPRIM
     Indication: Urinary tract infection
     Dosage: UNK (160MG/800MG)
     Route: 065
  2. PHENAZOPYRIDINE [Suspect]
     Active Substance: PHENAZOPYRIDINE
     Indication: Headache
     Dosage: 99.5 MG, TID
     Route: 065

REACTIONS (6)
  - Methaemoglobinaemia [Recovering/Resolving]
  - Sulphaemoglobinaemia [Recovering/Resolving]
  - Anaemia Heinz body [Recovering/Resolving]
  - Haemolytic anaemia [Recovering/Resolving]
  - Cyanosis [Recovering/Resolving]
  - Hypoxia [Recovering/Resolving]
